FAERS Safety Report 7767193-X (Version None)
Quarter: 2011Q3

REPORT INFORMATION
  Report Type: 
  Country: None (occurrence: None)
  Receive Date: 20110922
  Receipt Date: 20110414
  Transmission Date: 20111222
  Serious: No
  Sender: FDA-Public Use
  Company Number: US-ASTRAZENECA-2011SE21520

PATIENT
  Sex: Male
  Weight: 172.4 kg

DRUGS (4)
  1. BLOOD PRESSURE MEDICATION [Concomitant]
  2. DEPAKOTE [Concomitant]
  3. SIMVASTATIN [Concomitant]
  4. SEROQUEL XR [Suspect]
     Indication: DISTURBANCE IN ATTENTION
     Dosage: 300-400 MG, AS REQUIRED
     Route: 048

REACTIONS (2)
  - OFF LABEL USE [None]
  - SOMNOLENCE [None]
